FAERS Safety Report 4521823-4 (Version None)
Quarter: 2004Q4

REPORT INFORMATION
  Report Type: 
  Country: None (occurrence: None)
  Receive Date: 20041209
  Receipt Date: 20041130
  Transmission Date: 20050328
  Serious: Yes (Hospitalization)
  Sender: FDA-Public Use
  Company Number: FR-JNJFOC-20041200215

PATIENT
  Age: 50 Year
  Sex: Female

DRUGS (9)
  1. HALDOL [Suspect]
     Indication: DRUG USE FOR UNKNOWN INDICATION
     Route: 049
  2. TEMESTA [Suspect]
     Indication: DRUG USE FOR UNKNOWN INDICATION
  3. MEPRONIZINE [Suspect]
  4. MEPRONIZINE [Suspect]
     Indication: DRUG USE FOR UNKNOWN INDICATION
  5. MODECATE [Suspect]
     Indication: DRUG USE FOR UNKNOWN INDICATION
     Dates: start: 20041012, end: 20041020
  6. RIFATER [Suspect]
     Dates: start: 20040915
  7. RIFATER [Suspect]
     Dates: start: 20040915
  8. RIFATER [Suspect]
     Indication: DRUG USE FOR UNKNOWN INDICATION
     Dates: start: 20040915
  9. TERCIAN [Concomitant]

REACTIONS (6)
  - ALANINE AMINOTRANSFERASE INCREASED [None]
  - ASPARTATE AMINOTRANSFERASE INCREASED [None]
  - BLOOD CREATINE PHOSPHOKINASE INCREASED [None]
  - EPILEPSY [None]
  - EXTRAPYRAMIDAL DISORDER [None]
  - HEPATIC ENZYME INCREASED [None]
